FAERS Safety Report 15883509 (Version 1)
Quarter: 2019Q1

REPORT INFORMATION
  Report Type: Spontaneous
  Country: FR (occurrence: FR)
  Receive Date: 20190129
  Receipt Date: 20190129
  Transmission Date: 20190417
  Serious: Yes (Hospitalization)
  Sender: FDA-Public Use
  Company Number: FR-ACCORD-103816

PATIENT
  Age: 88 Year
  Sex: Male

DRUGS (2)
  1. FLUINDIONE [Interacting]
     Active Substance: FLUINDIONE
     Indication: CARDIOMYOPATHY
     Route: 048
     Dates: start: 201206, end: 20180221
  2. ALLOPURINOL. [Suspect]
     Active Substance: ALLOPURINOL
     Indication: PRODUCT USED FOR UNKNOWN INDICATION
     Route: 048
     Dates: end: 20180221

REACTIONS (2)
  - Drug interaction [Unknown]
  - Haemorrhagic stroke [Recovered/Resolved with Sequelae]

NARRATIVE: CASE EVENT DATE: 20180221
